FAERS Safety Report 12268955 (Version 1)
Quarter: 2016Q2

REPORT INFORMATION
  Report Type: Spontaneous
  Country: PE (occurrence: PE)
  Receive Date: 20160414
  Receipt Date: 20160414
  Transmission Date: 20160815
  Serious: Yes (Other)
  Sender: FDA-Public Use
  Company Number: PE-PFIZER INC-2016202844

PATIENT
  Age: 72 Year
  Sex: Female

DRUGS (1)
  1. XALATAN [Suspect]
     Active Substance: LATANOPROST
     Dosage: UNK

REACTIONS (6)
  - Headache [Unknown]
  - Eye haemorrhage [Unknown]
  - Hypertension [Unknown]
  - Ocular discomfort [Unknown]
  - Treatment noncompliance [Unknown]
  - Feeling abnormal [Unknown]
